FAERS Safety Report 11942685 (Version 1)
Quarter: 2016Q1

REPORT INFORMATION
  Report Type: Spontaneous
  Country: US (occurrence: US)
  Receive Date: 20160125
  Receipt Date: 20160125
  Transmission Date: 20160526
  Serious: No
  Sender: FDA-Public Use
  Company Number: US-UNITED THERAPEUTICS-UNT-2015-007727

PATIENT
  Sex: Female
  Weight: 86.17 kg

DRUGS (1)
  1. ORENITRAM [Suspect]
     Active Substance: TREPROSTINIL
     Indication: PULMONARY HYPERTENSION
     Dosage: 1.75 MG, TID
     Route: 048
     Dates: start: 20140729

REACTIONS (4)
  - Haemoglobin decreased [Unknown]
  - Oesophageal pain [Unknown]
  - Throat irritation [Unknown]
  - Blood iron decreased [Unknown]
